FAERS Safety Report 8243937-8 (Version None)
Quarter: 2012Q1

REPORT INFORMATION
  Report Type: 
  Country: None (occurrence: None)
  Receive Date: 20120309
  Receipt Date: 20101025
  Transmission Date: 20120608
  Serious: Yes (Other)
  Sender: FDA-Public Use
  Company Number: PHHY2010US17487

PATIENT
  Age: 36 Year
  Sex: Male

DRUGS (14)
  1. ANDROGEL [Concomitant]
  2. ANTIHYPERTENSIVES (NO INGREDIENTS/SUBSTANCES) [Concomitant]
  3. SYNTHROID [Concomitant]
  4. EXTAVIA [Suspect]
     Indication: MULTIPLE SCLEROSIS
     Dosage: 0.125 MG, QOD, SUBCUTANEOUS
     Route: 058
     Dates: start: 20100317
  5. VITAMIN B12 [Concomitant]
  6. ACETAMINOPHEN [Concomitant]
  7. NAPROXEN [Concomitant]
  8. NEXIUM [Concomitant]
  9. XANAX [Concomitant]
  10. STEROIDS NOS (NO INGREDIENTS/SUBSTANCES) [Concomitant]
  11. EXTAVIA [Suspect]
     Indication: MULTIPLE SCLEROSIS
     Dosage: 0.25 MG, QOD, SUBCUTANEOUS; 0.125 MG, QOD, SUBCUTANEOUS
     Route: 058
     Dates: start: 20100313
  12. ADVIL (IBIPROFEN) [Concomitant]
  13. PROVIGIL [Concomitant]
  14. VITAMIN D [Concomitant]

REACTIONS (12)
  - HYPERACUSIS [None]
  - HYPOAESTHESIA [None]
  - PAIN [None]
  - HEADACHE [None]
  - URINARY RETENTION [None]
  - FATIGUE [None]
  - DIPLOPIA [None]
  - CONSTIPATION [None]
  - PARAESTHESIA [None]
  - VISION BLURRED [None]
  - ARTHRALGIA [None]
  - INSOMNIA [None]
